FAERS Safety Report 8374503-1 (Version None)
Quarter: 2012Q2

REPORT INFORMATION
  Report Type: 
  Country: None (occurrence: None)
  Receive Date: 20120521
  Receipt Date: 20120507
  Transmission Date: 20120825
  Serious: Yes (Hospitalization, Other)
  Sender: FDA-Public Use
  Company Number: US-JNJFOC-20120507801

PATIENT
  Sex: Female
  Weight: 71.22 kg

DRUGS (13)
  1. REMICADE [Suspect]
     Route: 042
     Dates: start: 20080101, end: 20110101
  2. PROTONIX [Concomitant]
     Indication: GASTROOESOPHAGEAL REFLUX DISEASE
     Route: 048
     Dates: start: 20050101
  3. REMICADE [Suspect]
     Route: 042
     Dates: start: 20120502
  4. LIPITOR [Concomitant]
     Indication: BLOOD CHOLESTEROL INCREASED
     Route: 048
     Dates: start: 20070101
  5. HYDROCHLOROTHIAZIDE [Concomitant]
     Indication: RHEUMATOID ARTHRITIS
     Route: 048
     Dates: start: 20030101
  6. ALLEGRA [Concomitant]
     Indication: PREMEDICATION
     Route: 065
  7. PREDNISOLONE [Concomitant]
     Indication: RHEUMATOID ARTHRITIS
     Route: 048
     Dates: start: 20070101
  8. REMICADE [Suspect]
     Indication: RHEUMATOID ARTHRITIS
     Route: 042
     Dates: start: 20120401, end: 20120501
  9. ARAVA [Concomitant]
     Indication: RHEUMATOID ARTHRITIS
     Route: 048
     Dates: start: 20080101
  10. BENADRYL [Concomitant]
     Indication: PREMEDICATION
     Route: 065
  11. BUPROPION HCL [Concomitant]
     Indication: ANTIDEPRESSANT THERAPY
     Route: 048
     Dates: start: 20000101
  12. AMITIZA [Concomitant]
     Indication: CONSTIPATION
     Route: 048
     Dates: start: 20110101
  13. KADIAN [Concomitant]
     Indication: PAIN
     Dosage: 3 IN THE MORNING AND 4 AT NIGHT
     Route: 048
     Dates: start: 20000101

REACTIONS (20)
  - HYPERTENSION [None]
  - BLOOD POTASSIUM DECREASED [None]
  - DIARRHOEA [None]
  - RHEUMATOID ARTHRITIS [None]
  - MALAISE [None]
  - MUSCULOSKELETAL STIFFNESS [None]
  - CHOLELITHIASIS [None]
  - TREMOR [None]
  - CHILLS [None]
  - BRONCHITIS [None]
  - SINUSITIS [None]
  - INCISION SITE COMPLICATION [None]
  - FATIGUE [None]
  - FEELING OF BODY TEMPERATURE CHANGE [None]
  - IMPAIRED HEALING [None]
  - OROPHARYNGEAL PAIN [None]
  - URTICARIA [None]
  - DRUG INEFFECTIVE [None]
  - RASH [None]
  - NAUSEA [None]
